FAERS Safety Report 12627230 (Version 2)
Quarter: 2016Q4

REPORT INFORMATION
  Report Type: Spontaneous
  Country: AU (occurrence: AU)
  Receive Date: 20160805
  Receipt Date: 20161208
  Transmission Date: 20170207
  Serious: Yes (Other)
  Sender: FDA-Public Use
  Company Number: AU-009507513-1607AUS013067

PATIENT
  Sex: Female
  Weight: 61 kg

DRUGS (1)
  1. ETONOGESTREL IMPLANT- UNKNOWN [Suspect]
     Active Substance: ETONOGESTREL
     Dosage: UNK
     Route: 059
     Dates: start: 20131104

REACTIONS (3)
  - Unintended pregnancy [Recovered/Resolved]
  - Abortion spontaneous [Recovered/Resolved]
  - Pregnancy with implant contraceptive [Recovered/Resolved]

NARRATIVE: CASE EVENT DATE: 201606
